FAERS Safety Report 5670251-7 (Version None)
Quarter: 2008Q1

REPORT INFORMATION
  Report Type: 
  Country: None (occurrence: None)
  Receive Date: 20080318
  Receipt Date: 20080311
  Transmission Date: 20080703
  Serious: Yes (Life-Threatening, Hospitalization, Disabling)
  Sender: FDA-Public Use
  Company Number: SG-BAYER-SG-2007-028410

PATIENT
  Age: 46 Year
  Sex: Male

DRUGS (8)
  1. MABCAMPATH [Suspect]
     Indication: IMMUNOSUPPRESSION
     Dosage: UNIT DOSE: 20 MG
     Route: 042
     Dates: start: 20070726, end: 20070726
  2. MABCAMPATH [Suspect]
     Route: 042
     Dates: start: 20070727, end: 20070727
  3. SOLU-MEDROL [Concomitant]
     Indication: RENAL TRANSPLANT
     Route: 042
     Dates: start: 20070726, end: 20070726
  4. PIRITION [Concomitant]
     Indication: RENAL TRANSPLANT
     Dosage: UNIT DOSE: 4 MG
     Route: 042
     Dates: start: 20070726, end: 20070726
  5. ROCEPHIN [Concomitant]
     Indication: PROPHYLAXIS
     Route: 042
     Dates: start: 20070726
  6. ANAESTHETICS [Concomitant]
     Indication: RENAL TRANSPLANT
  7. PROGRAF [Concomitant]
     Indication: IMMUNOSUPPRESSION
     Dates: start: 20070701
  8. PROGRAF [Concomitant]
     Dosage: UNIT DOSE: 3 MG

REACTIONS (10)
  - ACTIVATED PARTIAL THROMBOPLASTIN TIME PROLONGED [None]
  - AZOTAEMIA [None]
  - COAGULOPATHY [None]
  - FLUID OVERLOAD [None]
  - GRAFT DYSFUNCTION [None]
  - GRAFT HAEMORRHAGE [None]
  - HAEMORRHAGE [None]
  - HYPOTENSION [None]
  - OLIGURIA [None]
  - SEPSIS [None]
